FAERS Safety Report 6955759 (Version 2)
Quarter: 2013Q4

REPORT INFORMATION
  Report Type: Spontaneous
  Country: US (occurrence: None)
  Receive Date: 20090320
  Receipt Date: 20131126
  Transmission Date: 20140711
  Serious: Yes (Other)
  Sender: FDA-Public Use
  Company Number: 2009S1002368

PATIENT
  Age: 68 Year
  Sex: Male

DRUGS (3)
  1. SODIUM PHOSPHATE, DIBASIC\SODIUM PHOSPHATE, MONOBASIC, ANHYDROUS [Suspect]
     Indication: SURGERY
     Dosage: 90 ML; TOTAL; PO
     Route: 048
     Dates: start: 20081012, end: 20081012
  2. GO-LYTELY [Suspect]
  3. LISINOPRIL (LISINOPROL) [Concomitant]

REACTIONS (5)
  - Renal failure acute [None]
  - Renal tubular disorder [None]
  - Nephropathy [None]
  - Nephrocalcinosis [None]
  - Renal failure chronic [None]
